FAERS Safety Report 6392955-3 (Version None)
Quarter: 2009Q4

REPORT INFORMATION
  Report Type: 
  Country: None (occurrence: None)
  Receive Date: 20091008
  Receipt Date: 20070807
  Transmission Date: 20100525
  Serious: Yes (Hospitalization, Other)
  Sender: FDA-Public Use
  Company Number: US-ASTRAZENECA-2006UW22427

PATIENT
  Age: 19283 Day
  Sex: Female
  Weight: 83.5 kg

DRUGS (16)
  1. SEROQUEL [Suspect]
     Indication: INSOMNIA
     Route: 048
     Dates: start: 20030412, end: 20060612
  2. SEROQUEL [Suspect]
     Indication: DEPRESSION
     Route: 048
     Dates: start: 20030412, end: 20060612
  3. SEROQUEL [Suspect]
     Route: 048
     Dates: start: 20060206
  4. SEROQUEL [Suspect]
     Route: 048
     Dates: start: 20060206
  5. ABILIFY [Suspect]
     Dates: start: 20060206
  6. PAXIL [Suspect]
     Dates: start: 20060306
  7. RELACORE [Concomitant]
     Indication: WEIGHT CONTROL
  8. ATENOLOL [Concomitant]
     Dates: start: 20060213
  9. LEVOTHYROXINE SODIUM [Concomitant]
     Dates: start: 20060206
  10. NORVASC [Concomitant]
     Dates: start: 20060216
  11. METFORMIN [Concomitant]
     Route: 048
     Dates: start: 20060206
  12. NAPROSYN [Concomitant]
     Indication: ARTHRALGIA
     Route: 048
     Dates: start: 20060306
  13. COGENTIN [Concomitant]
     Dates: start: 20060306
  14. COLACE [Concomitant]
     Indication: CONSTIPATION
     Route: 048
     Dates: start: 20060306
  15. HYDROCHLOROTHIAZIDE [Concomitant]
     Dates: start: 20060206
  16. TRAZODONE [Concomitant]
     Dosage: 50 MG - 100 MG AT BEDTIME
     Dates: start: 20070808

REACTIONS (4)
  - DIABETES MELLITUS [None]
  - MENINGITIS [None]
  - MENINGITIS PNEUMOCOCCAL [None]
  - TYPE 2 DIABETES MELLITUS [None]
